FAERS Safety Report 23753501 (Version 1)
Quarter: 2024Q2

REPORT INFORMATION
  Report Type: Spontaneous
  Country: US (occurrence: None)
  Receive Date: 20240417
  Receipt Date: 20240417
  Transmission Date: 20240716
  Serious: Yes (Other)
  Sender: FDA-Public Use
  Company Number: None

PATIENT
  Age: 18 Year
  Sex: Male
  Weight: 78.75 kg

DRUGS (1)
  1. ATOMOXETINE HYDROCHLORIDE [Suspect]
     Active Substance: ATOMOXETINE HYDROCHLORIDE
     Indication: Attention deficit hyperactivity disorder
     Dosage: 1 CAPSULE DAILY ORAL
     Route: 048
     Dates: end: 20240405

REACTIONS (2)
  - Rash [None]
  - Gingival swelling [None]

NARRATIVE: CASE EVENT DATE: 20240318
